FAERS Safety Report 23365205 (Version 1)
Quarter: 2024Q1

REPORT INFORMATION
  Report Type: Spontaneous
  Country: CN (occurrence: None)
  Receive Date: 20240104
  Receipt Date: 20240104
  Transmission Date: 20240409
  Serious: Yes (Hospitalization)
  Sender: FDA-Public Use
  Company Number: 2024A000137

PATIENT
  Age: 68 Year
  Sex: Male
  Weight: 75 kg

DRUGS (1)
  1. BUDESONIDE\FORMOTEROL FUMARATE [Suspect]
     Active Substance: BUDESONIDE\FORMOTEROL FUMARATE
     Indication: Chronic obstructive pulmonary disease
     Dosage: 160UG:4.5UG, EVERY DAY
     Route: 055
     Dates: start: 20191024

REACTIONS (2)
  - Chronic obstructive pulmonary disease [Unknown]
  - Oral infection [Recovering/Resolving]

NARRATIVE: CASE EVENT DATE: 20231225
